FAERS Safety Report 19751953 (Version 2)
Quarter: 2021Q3

REPORT INFORMATION
  Report Type: Spontaneous
  Country: JP (occurrence: JP)
  Receive Date: 20210827
  Receipt Date: 20210928
  Transmission Date: 20211014
  Serious: Yes (Death, Other)
  Sender: FDA-Public Use
  Company Number: JP-JNJFOC-A-CH2017-161390

PATIENT
  Age: 67 Year
  Sex: Female
  Weight: 44 kg

DRUGS (21)
  1. OPSUMIT [Suspect]
     Active Substance: MACITENTAN
     Indication: PULMONARY ARTERIAL HYPERTENSION
     Dosage: 10 MG, QD
     Route: 048
     Dates: start: 20170111
  2. UPTRAVI [Suspect]
     Active Substance: SELEXIPAG
     Dosage: 1.2 MG, BID
     Route: 048
     Dates: start: 20170809, end: 20170824
  3. UPTRAVI [Suspect]
     Active Substance: SELEXIPAG
     Dosage: 0.6  MG, BID
     Route: 048
     Dates: start: 20170512, end: 20170622
  4. TAKECAB [Concomitant]
     Active Substance: VONOPRAZAN FUMARATE
     Dosage: 10 MG, QD
     Dates: start: 20170305
  5. OPSUMIT [Suspect]
     Active Substance: MACITENTAN
     Dosage: 10 MG, QD
     Route: 048
     Dates: start: 20160810
  6. UPTRAVI [Suspect]
     Active Substance: SELEXIPAG
     Dosage: 0.4  MG, BID
     Route: 048
     Dates: start: 20170303, end: 20170309
  7. UPTRAVI [Suspect]
     Active Substance: SELEXIPAG
     Dosage: 0.8  MG, BID
     Route: 048
     Dates: start: 20170317, end: 20170406
  8. UPTRAVI [Suspect]
     Active Substance: SELEXIPAG
     Dosage: 0.4  MG, BID
     Route: 048
     Dates: start: 20170407, end: 20170511
  9. UPTRAVI [Suspect]
     Active Substance: SELEXIPAG
     Dosage: 1.6 MG, BID
     Route: 048
     Dates: start: 20170907
  10. UPTRAVI [Suspect]
     Active Substance: SELEXIPAG
     Dosage: 1.4  MG, BID
     Route: 048
     Dates: start: 20170825, end: 20170906
  11. OXYGEN. [Concomitant]
     Active Substance: OXYGEN
  12. UPTRAVI [Suspect]
     Active Substance: SELEXIPAG
     Indication: PULMONARY ARTERIAL HYPERTENSION
     Dosage: 0.2 MG, BID
     Route: 048
     Dates: start: 20170224, end: 20170302
  13. UPTRAVI [Suspect]
     Active Substance: SELEXIPAG
     Dosage: 0.7  MG, BID
     Route: 048
     Dates: start: 20170623, end: 20170713
  14. ADCIRCA [Concomitant]
     Active Substance: TADALAFIL
     Indication: PULMONARY ARTERIAL HYPERTENSION
     Route: 048
     Dates: start: 20171021
  15. WARFARIN [Concomitant]
     Active Substance: WARFARIN
     Indication: ARRHYTHMIA
     Dosage: 2.5 MG, QD
  16. UPTRAVI [Suspect]
     Active Substance: SELEXIPAG
     Dosage: 0.6  MG, BID
     Route: 048
     Dates: start: 20170310, end: 20170316
  17. UPTRAVI [Suspect]
     Active Substance: SELEXIPAG
     Dosage: 0.8  MG, BID
     Route: 048
     Dates: start: 20170714, end: 20170727
  18. MAINTATE [Concomitant]
     Active Substance: BISOPROLOL FUMARATE
     Indication: ARRHYTHMIA
     Dosage: 2.5 MG, QD
  19. DIGOSIN [Concomitant]
     Active Substance: DIGOXIN
     Indication: ARRHYTHMIA
     Dosage: 0.125 MG, QD
  20. UPTRAVI [Suspect]
     Active Substance: SELEXIPAG
     Dosage: 1.0  MG, BID
     Route: 048
     Dates: start: 20170728, end: 20170808
  21. REVATIO [Suspect]
     Active Substance: SILDENAFIL CITRATE
     Indication: PULMONARY ARTERIAL HYPERTENSION
     Route: 048
     Dates: start: 20170124, end: 20171020

REACTIONS (4)
  - White blood cell count decreased [Not Recovered/Not Resolved]
  - Cardiac failure [Recovered/Resolved]
  - Platelet count decreased [Not Recovered/Not Resolved]
  - Marasmus [Fatal]

NARRATIVE: CASE EVENT DATE: 20160916
